FAERS Safety Report 12318823 (Version 1)
Quarter: 2016Q2

REPORT INFORMATION
  Report Type: Spontaneous
  Country: US (occurrence: US)
  Receive Date: 20160429
  Receipt Date: 20160429
  Transmission Date: 20160815
  Serious: No
  Sender: FDA-Public Use
  Company Number: GXBR2015US001313

PATIENT
  Age: 66 Year
  Sex: Female
  Weight: 74.83 kg

DRUGS (3)
  1. NITROFURANTOIN CAPSULES USP [Suspect]
     Active Substance: NITROFURANTOIN
     Indication: ESCHERICHIA BACTERAEMIA
     Dosage: 100 MG, BID FOR 10 DAYS
     Route: 048
     Dates: start: 20150428, end: 20150428
  2. ARMOUR THYROID [Concomitant]
     Active Substance: THYROID, PORCINE
     Indication: HYPOTHYROIDISM
     Dosage: UNK DF, UNK
  3. NITROFURANTOIN CAPSULES USP [Suspect]
     Active Substance: NITROFURANTOIN
     Indication: URINARY TRACT INFECTION

REACTIONS (4)
  - Dysphonia [Recovered/Resolved]
  - Middle ear effusion [Recovered/Resolved]
  - Feeling abnormal [Recovered/Resolved]
  - Arthralgia [Recovered/Resolved]

NARRATIVE: CASE EVENT DATE: 20150428
